FAERS Safety Report 16507468 (Version 6)
Quarter: 2020Q1

REPORT INFORMATION
  Report Type: Report from Study
  Country: JP (occurrence: JP)
  Receive Date: 20190701
  Receipt Date: 20200316
  Transmission Date: 20200409
  Serious: Yes (Death, Life-Threatening)
  Sender: FDA-Public Use
  Company Number: JP-ASTRAZENECA-2019SE42516

PATIENT
  Age: 22190 Day
  Sex: Female
  Weight: 54 kg

DRUGS (15)
  1. PACLITAXEL. [Suspect]
     Active Substance: PACLITAXEL
     Indication: OVARIAN CANCER
     Dosage: 175.0MG/M2 UNKNOWN
     Route: 065
     Dates: start: 20180201, end: 20180608
  2. BEVACIZUMAB(GENETICAL RECOMBINATION) [Suspect]
     Active Substance: BEVACIZUMAB
     Indication: OVARIAN CANCER
     Route: 065
     Dates: start: 20161101, end: 20170608
  3. BEVACIZUMAB(GENETICAL RECOMBINATION) [Suspect]
     Active Substance: BEVACIZUMAB
     Indication: OVARIAN CANCER
     Route: 065
     Dates: start: 201712
  4. CARBOPLATIN. [Suspect]
     Active Substance: CARBOPLATIN
     Indication: OVARIAN CANCER
     Dosage: 6 AUC
     Route: 065
     Dates: start: 20160825, end: 20161026
  5. PACLITAXEL. [Suspect]
     Active Substance: PACLITAXEL
     Indication: OVARIAN CANCER
     Dosage: 175.0MG/M2 UNKNOWN
     Route: 065
     Dates: start: 20160108, end: 20160609
  6. PACLITAXEL. [Suspect]
     Active Substance: PACLITAXEL
     Indication: OVARIAN CANCER
     Dosage: 175.0MG/M2 UNKNOWN
     Route: 065
     Dates: start: 20160725
  7. PACLITAXEL. [Suspect]
     Active Substance: PACLITAXEL
     Indication: OVARIAN CANCER
     Dosage: 175.0MG/M2 UNKNOWN
     Route: 065
     Dates: start: 201712
  8. CARBOPLATIN. [Suspect]
     Active Substance: CARBOPLATIN
     Indication: OVARIAN CANCER
     Dosage: 6 AUC
     Route: 065
     Dates: start: 20160725
  9. CARBOPLATIN. [Suspect]
     Active Substance: CARBOPLATIN
     Indication: OVARIAN CANCER
     Dosage: 6 AUC
     Route: 065
     Dates: start: 201712
  10. CARBOPLATIN. [Suspect]
     Active Substance: CARBOPLATIN
     Indication: OVARIAN CANCER
     Route: 065
     Dates: start: 20180201, end: 20180608
  11. BEVACIZUMAB(GENETICAL RECOMBINATION) [Suspect]
     Active Substance: BEVACIZUMAB
     Indication: OVARIAN CANCER
     Route: 065
     Dates: start: 20160825, end: 20161026
  12. PACLITAXEL. [Suspect]
     Active Substance: PACLITAXEL
     Indication: OVARIAN CANCER
     Dosage: 175.0MG/M2 UNKNOWN
     Route: 065
     Dates: start: 20160825, end: 20161026
  13. LYNPARZA [Suspect]
     Active Substance: OLAPARIB
     Indication: OVARIAN CANCER
     Route: 048
     Dates: start: 20180720, end: 20181019
  14. LYNPARZA [Suspect]
     Active Substance: OLAPARIB
     Indication: OVARIAN CANCER
     Route: 048
     Dates: start: 20181116, end: 20190222
  15. CARBOPLATIN. [Suspect]
     Active Substance: CARBOPLATIN
     Indication: OVARIAN CANCER
     Dosage: 6 AUC
     Route: 065
     Dates: start: 20160108, end: 20160609

REACTIONS (4)
  - Platelet count decreased [Fatal]
  - Hepatic function abnormal [Not Recovered/Not Resolved]
  - Acute myeloid leukaemia [Fatal]
  - Anaemia [Recovered/Resolved]

NARRATIVE: CASE EVENT DATE: 20181019
